FAERS Safety Report 6703940-3 (Version None)
Quarter: 2010Q2

REPORT INFORMATION
  Report Type: 
  Country: None (occurrence: None)
  Receive Date: 20100430
  Receipt Date: 20100421
  Transmission Date: 20101027
  Serious: Yes (Other)
  Sender: FDA-Public Use
  Company Number: US-PFIZER INC-2010051082

PATIENT
  Sex: Female
  Weight: 72.562 kg

DRUGS (1)
  1. LYRICA [Suspect]
     Indication: FIBROMYALGIA
     Dosage: 50 MG, 2X/DAY
     Dates: start: 20080101

REACTIONS (6)
  - DIZZINESS [None]
  - FOOD ALLERGY [None]
  - PAIN [None]
  - THYROID CANCER [None]
  - VITAMIN D DEFICIENCY [None]
  - WEIGHT DECREASED [None]
